FAERS Safety Report 15286012 (Version 1)
Quarter: 2018Q3

REPORT INFORMATION
  Report Type: Spontaneous
  Country: US (occurrence: US)
  Receive Date: 20180816
  Receipt Date: 20180816
  Transmission Date: 20181010
  Serious: Yes (Other)
  Sender: FDA-Public Use
  Company Number: US-BAYER-2018-149747

PATIENT
  Age: 74 Year
  Sex: Female

DRUGS (1)
  1. COPPERTONE CLEARLY SHEER WHIPPED SPF 30 [Suspect]
     Active Substance: AVOBENZONE\HOMOSALATE\OCTISALATE\OCTOCRYLENE
     Indication: TANNING
     Dosage: UNK
     Dates: start: 20180807, end: 20180807

REACTIONS (2)
  - Rash [Recovering/Resolving]
  - Rash pruritic [Recovering/Resolving]

NARRATIVE: CASE EVENT DATE: 20180807
